FAERS Safety Report 9312087 (Version 2)
Quarter: 2013Q2

REPORT INFORMATION
  Report Type: Spontaneous
  Country: TH (occurrence: TH)
  Receive Date: 20130528
  Receipt Date: 20130605
  Transmission Date: 20140414
  Serious: Yes (Death, Hospitalization)
  Sender: FDA-Public Use
  Company Number: TH-BAXTER-2013BAX018957

PATIENT
  Sex: Male

DRUGS (1)
  1. DIANEAL LOW CALCIUM (2.5 PERCENT MEQ/L) PERITONEAL DIALYSIS SOL WITH 1 [Suspect]
     Indication: PERITONEAL DIALYSIS
     Route: 033
     Dates: start: 20120309, end: 20130508

REACTIONS (2)
  - Cardiovascular disorder [Fatal]
  - Fluid overload [Unknown]
